FAERS Safety Report 24804776 (Version 2)
Quarter: 2025Q2

REPORT INFORMATION
  Report Type: Spontaneous
  Country: JP (occurrence: JP)
  Receive Date: 20250103
  Receipt Date: 20250529
  Transmission Date: 20250716
  Serious: Yes (Hospitalization)
  Sender: CATALYST PHARMA
  Company Number: JP-CATALYSTPHARMACEUTICALPARTNERS-JP-CATA-24-01645

PATIENT
  Age: 6 Year
  Sex: Female

DRUGS (4)
  1. PERAMPANEL [Suspect]
     Active Substance: PERAMPANEL
     Indication: Rett syndrome
     Dosage: 2 MG, 1 IN 1 DAY
     Route: 048
     Dates: start: 20230524, end: 20230606
  2. PERAMPANEL [Suspect]
     Active Substance: PERAMPANEL
     Indication: Generalised tonic-clonic seizure
     Dosage: 4 MG, 1 IN 1 DAY
     Route: 048
     Dates: start: 20230607, end: 20230622
  3. DEPAKENE [Suspect]
     Active Substance: VALPROIC ACID
     Indication: Epilepsy
     Dosage: IN 8 HOUR
     Route: 065
     Dates: start: 20190329, end: 20230621
  4. TOPIRAMATE [Concomitant]
     Active Substance: TOPIRAMATE
     Indication: Epilepsy
     Dosage: 140.0 MILLIGRAM(S) (70 MILLIGRAM(S), 1 IN 12 HOUR
     Route: 065
     Dates: start: 20191025

REACTIONS (6)
  - Hyperammonaemia [Recovered/Resolved]
  - Respiratory failure [Recovered/Resolved]
  - Toxicity to various agents [Unknown]
  - Altered state of consciousness [Recovered/Resolved]
  - Lethargy [Recovered/Resolved]
  - Off label use [Unknown]

NARRATIVE: CASE EVENT DATE: 20230601
